FAERS Safety Report 6749174-8 (Version None)
Quarter: 2010Q2

REPORT INFORMATION
  Report Type: 
  Country: None (occurrence: None)
  Receive Date: 20100601
  Receipt Date: 20100519
  Transmission Date: 20101027
  Serious: Yes (Hospitalization)
  Sender: FDA-Public Use
  Company Number: US-BAYER-201021924NA

PATIENT
  Age: 52 Year
  Sex: Male

DRUGS (4)
  1. BETASERON [Suspect]
     Indication: MULTIPLE SCLEROSIS
     Route: 065
  2. AVONEX [Concomitant]
  3. AVONEX [Concomitant]
     Dates: start: 20060101
  4. REBIF [Concomitant]
     Dates: end: 20030101

REACTIONS (6)
  - BACK DISORDER [None]
  - BACK PAIN [None]
  - FALL [None]
  - MOBILITY DECREASED [None]
  - MULTIPLE SCLEROSIS [None]
  - MULTIPLE SCLEROSIS RELAPSE [None]
